FAERS Safety Report 5952633-9 (Version None)
Quarter: 2008Q4

REPORT INFORMATION
  Report Type: 
  Country: None (occurrence: None)
  Receive Date: 20081028
  Receipt Date: 20071026
  Transmission Date: 20090506
  Serious: Yes (Other)
  Sender: FDA-Public Use
  Company Number: 163210USA

PATIENT
  Age: 55 Year
  Sex: Male

DRUGS (4)
  1. NEFAZODONE HYDROCHLORIDE [Suspect]
     Indication: DEPRESSION
     Dosage: 400 MG (100 MG,4 IN 1 D),ORAL
     Route: 048
     Dates: start: 20060901, end: 20071025
  2. MESALAMINE [Concomitant]
  3. ESOMEPRAZOLE MAGNESIUM [Concomitant]
  4. PENTOXIFYLLINE [Concomitant]

REACTIONS (7)
  - AGITATION [None]
  - CONFUSIONAL STATE [None]
  - CONVULSION [None]
  - DISORIENTATION [None]
  - LOSS OF CONSCIOUSNESS [None]
  - RESTLESSNESS [None]
  - TREMOR [None]
